FAERS Safety Report 7642092-2 (Version None)
Quarter: 2011Q3

REPORT INFORMATION
  Report Type: 
  Country: None (occurrence: None)
  Receive Date: 20110728
  Receipt Date: 20110719
  Transmission Date: 20111222
  Serious: Yes (Other)
  Sender: FDA-Public Use
  Company Number: DE-ELI_LILLY_AND_COMPANY-DE201107005134

PATIENT
  Age: 63 Year
  Sex: Male

DRUGS (2)
  1. GEMZAR [Suspect]
     Indication: BILE DUCT CANCER
     Dosage: 1000 MG/M2, UNK
     Route: 042
     Dates: start: 20100101, end: 20101201
  2. GEMZAR [Suspect]
     Dosage: UNK
     Dates: start: 20110501

REACTIONS (8)
  - ARTHROPATHY [None]
  - LYMPHADENOPATHY [None]
  - RASH [None]
  - THROMBOCYTOPENIA [None]
  - METASTASIS [None]
  - INFLUENZA LIKE ILLNESS [None]
  - NEOPLASM PROGRESSION [None]
  - ASCITES [None]
